FAERS Safety Report 8964737 (Version 2)
Quarter: 2014Q2

REPORT INFORMATION
  Report Type: Spontaneous
  Country: JP (occurrence: JP)
  Receive Date: 20121213
  Receipt Date: 20131018
  Transmission Date: 20141212
  Serious: Yes (Life-Threatening, Hospitalization)
  Sender: FDA-Public Use
  Company Number: JP-PFIZER INC-2012252690

PATIENT
  Age: 76 Year
  Sex: Female

DRUGS (8)
  1. RHEUMATREX [Suspect]
     Indication: RHEUMATOID ARTHRITIS
     Dosage: 10 MG, WEEKLY
     Route: 048
     Dates: end: 20120831
  2. RHEUMATREX [Suspect]
     Dosage: 10 MG, WEEKLY
     Route: 048
     Dates: start: 20121012, end: 20121020
  3. AZULFIDINE [Suspect]
     Indication: RHEUMATOID ARTHRITIS
     Dosage: 500 MG, 2X/DAY
     Route: 048
     Dates: end: 20120831
  4. AZULFIDINE [Suspect]
     Dosage: 500 MG, 2X/DAY
     Route: 048
     Dates: start: 20121012, end: 20121024
  5. FOLIAMIN [Concomitant]
     Dosage: 5 MG, WEEKLY
     Route: 048
     Dates: start: 20121015, end: 20121022
  6. PREDONINE [Concomitant]
     Dosage: 5 MG, 2X/DAY
     Route: 048
     Dates: start: 20120901
  7. BAYASPIRIN [Concomitant]
     Dosage: 100 MG, 1X/DAY
     Route: 048
     Dates: start: 20120901
  8. BONALON [Concomitant]
     Dosage: 35 MG, 1X/DAY
     Route: 048
     Dates: start: 20121008

REACTIONS (2)
  - White blood cell count decreased [Recovered/Resolved]
  - Platelet count decreased [Recovered/Resolved]
